FAERS Safety Report 10218436 (Version 3)
Quarter: 2014Q2

REPORT INFORMATION
  Report Type: Spontaneous
  Country: JP (occurrence: JP)
  Receive Date: 20140605
  Receipt Date: 20140609
  Transmission Date: 20141212
  Serious: No
  Sender: FDA-Public Use
  Company Number: PHHY2014JP040934

PATIENT
  Age: 65 Year
  Sex: Female

DRUGS (2)
  1. TASIGNA [Suspect]
     Indication: CHRONIC MYELOID LEUKAEMIA
     Dosage: 600 MG, DAILY
     Route: 048
     Dates: start: 20110310, end: 20110321
  2. TASIGNA [Suspect]
     Dosage: 400 MG, DAILY
     Route: 048
     Dates: start: 20110322

REACTIONS (5)
  - Glycosylated haemoglobin increased [Recovering/Resolving]
  - Blood bilirubin increased [Recovered/Resolved]
  - Lipids increased [Recovered/Resolved]
  - Blood triglycerides increased [Recovered/Resolved]
  - Total cholesterol/HDL ratio increased [Recovered/Resolved]
